FAERS Safety Report 9286545 (Version 1)
Quarter: 2013Q2

REPORT INFORMATION
  Report Type: Spontaneous
  Country: US (occurrence: US)
  Receive Date: 20130513
  Receipt Date: 20130513
  Transmission Date: 20140414
  Serious: No
  Sender: FDA-Public Use
  Company Number: US-ASTRAZENECA-2012SE85051

PATIENT
  Age: 61 Year
  Sex: Male

DRUGS (1)
  1. NEXIUM [Suspect]
     Dosage: SOMETIMES TAKES MORE THAN ONE CAPSULE
     Route: 048

REACTIONS (2)
  - Abdominal discomfort [Unknown]
  - Intentional drug misuse [Unknown]
